FAERS Safety Report 23530668 (Version 1)
Quarter: 2024Q1

REPORT INFORMATION
  Report Type: Spontaneous
  Country: US (occurrence: US)
  Receive Date: 20240216
  Receipt Date: 20240216
  Transmission Date: 20240410
  Serious: Yes (Other)
  Sender: FDA-Public Use
  Company Number: US-ELI_LILLY_AND_COMPANY-US202402005388

PATIENT
  Age: 71 Year
  Sex: Female

DRUGS (6)
  1. MOUNJARO [Suspect]
     Active Substance: TIRZEPATIDE
     Indication: Blood glucose increased
     Dosage: 2.5 MG, UNKNOWN
     Route: 058
     Dates: start: 20230808, end: 20231219
  2. MOUNJARO [Suspect]
     Active Substance: TIRZEPATIDE
     Indication: Blood glucose increased
     Dosage: 2.5 MG, UNKNOWN
     Route: 058
     Dates: start: 20230808, end: 20231219
  3. MOUNJARO [Suspect]
     Active Substance: TIRZEPATIDE
     Indication: Blood glucose increased
     Dosage: 2.5 MG, UNKNOWN
     Route: 058
     Dates: start: 20230808, end: 20231219
  4. MOUNJARO [Suspect]
     Active Substance: TIRZEPATIDE
     Indication: Blood glucose increased
     Dosage: 2.5 MG, UNKNOWN
     Route: 058
     Dates: start: 20230808, end: 20231219
  5. GABAPENTIN [Concomitant]
     Active Substance: GABAPENTIN
     Indication: Product used for unknown indication
     Dosage: 100 MG, MONTHLY (1/M)
     Route: 065
  6. GABAPENTIN [Concomitant]
     Active Substance: GABAPENTIN
     Dosage: 300 MG, DAILY
     Route: 065

REACTIONS (2)
  - Oesophageal adenocarcinoma [Not Recovered/Not Resolved]
  - Erosive duodenitis [Unknown]

NARRATIVE: CASE EVENT DATE: 20240113
